FAERS Safety Report 15214022 (Version 1)
Quarter: 2018Q3

REPORT INFORMATION
  Report Type: Spontaneous
  Country: US (occurrence: US)
  Receive Date: 20180702
  Receipt Date: 20180702
  Transmission Date: 20181010
  Serious: No
  Sender: FDA-Public Use
  Company Number: None

PATIENT
  Age: 60 Year
  Sex: Female
  Weight: 55.35 kg

DRUGS (8)
  1. FLUOXETINE [Concomitant]
     Active Substance: FLUOXETINE HYDROCHLORIDE
  2. SPIRONOLACTONE. [Concomitant]
     Active Substance: SPIRONOLACTONE
  3. CALCIUM [Concomitant]
     Active Substance: CALCIUM
  4. RESVERATROL [Concomitant]
     Active Substance: DIETARY SUPPLEMENT\RESVERATROL
  5. ESTRADIOL TAB 1MG GENERIC FOR ESTRACE TAB 1MG [Suspect]
     Active Substance: ESTRADIOL
     Indication: MENOPAUSAL SYMPTOMS
     Dosage: ?          QUANTITY:1 TABLET(S);?
     Route: 048
  6. EFFEXOR XR [Concomitant]
     Active Substance: VENLAFAXINE HYDROCHLORIDE
  7. UBIQUINOL [Concomitant]
     Active Substance: UBIQUINOL
  8. FISH OIL [Concomitant]
     Active Substance: FISH OIL

REACTIONS (5)
  - Drug ineffective [None]
  - Therapeutic response changed [None]
  - Insurance issue [None]
  - Inability to afford medication [None]
  - Product substitution issue [None]

NARRATIVE: CASE EVENT DATE: 20180609
